FAERS Safety Report 6386464-5 (Version None)
Quarter: 2009Q4

REPORT INFORMATION
  Report Type: 
  Country: None (occurrence: None)
  Receive Date: 20091002
  Receipt Date: 20090521
  Transmission Date: 20100525
  Serious: No
  Sender: FDA-Public Use
  Company Number: US-ASTRAZENECA-2009UW13163

PATIENT
  Sex: Female

DRUGS (12)
  1. ARIMIDEX [Suspect]
     Indication: BREAST CANCER
     Route: 048
  2. PRAVASTATIN [Concomitant]
  3. BUSPIRONE HCL [Concomitant]
  4. RITALIN [Concomitant]
  5. CONCERTA [Concomitant]
  6. BUPROPION HCL [Concomitant]
  7. CLONAZEPAM [Concomitant]
  8. BUTALBITAL [Concomitant]
  9. FLUOCINOLONE ACETONIDE [Concomitant]
  10. ATENOLOL [Concomitant]
  11. SERTRALINE HCL [Concomitant]
  12. LEVOTHYROXINE SODIUM [Concomitant]

REACTIONS (4)
  - ANXIETY DISORDER [None]
  - COGNITIVE DISORDER [None]
  - MAJOR DEPRESSION [None]
  - STRESS [None]
